FAERS Safety Report 23240607 (Version 3)
Quarter: 2023Q4

REPORT INFORMATION
  Report Type: Report from Study
  Country: CA (occurrence: CA)
  Receive Date: 20231129
  Receipt Date: 20231219
  Transmission Date: 20240110
  Serious: No
  Sender: FDA-Public Use
  Company Number: CA-SA-SAC20230806000022

PATIENT
  Age: 2 Year
  Sex: Female

DRUGS (12)
  1. DUPILUMAB [Suspect]
     Active Substance: DUPILUMAB
     Indication: Dermatitis atopic
     Dosage: 600 MG, 1X
     Route: 058
     Dates: start: 20230705, end: 20230705
  2. DUPILUMAB [Suspect]
     Active Substance: DUPILUMAB
     Dosage: 300 MG, Q4W
     Route: 058
     Dates: start: 2023
  3. TACROLIMUS [Concomitant]
     Active Substance: TACROLIMUS
     Dosage: 0.7 MG, Q12H
     Route: 048
  4. HYDROXYZINE [Concomitant]
     Active Substance: HYDROXYZINE HYDROCHLORIDE
     Dosage: UNK
  5. CHOLECALCIFEROL [Concomitant]
     Active Substance: CHOLECALCIFEROL
     Dosage: UNK UNK, QD
     Route: 048
  6. ELIXIR COLICO [Concomitant]
     Dosage: UNK UNK, PRN
  7. ZINC OXIDE [Concomitant]
     Active Substance: ZINC OXIDE
     Dosage: UNK UNK, Q8H
     Route: 061
  8. SODIUM POLYSTYRENE SULFONATE [Concomitant]
     Active Substance: SODIUM POLYSTYRENE SULFONATE
     Dosage: UNK UNK, QD
     Route: 048
  9. WHITE PETROLATUM [Concomitant]
     Active Substance: PETROLATUM
     Dosage: UNK UNK, Q8H
     Route: 061
  10. ENOXAPARIN [Concomitant]
     Active Substance: ENOXAPARIN
     Dosage: 15 MG, QD
     Route: 058
  11. BENADRYL [Concomitant]
     Active Substance: DIPHENHYDRAMINE HYDROCHLORIDE
     Dosage: 25 MG
     Route: 065
  12. DIPHENHYDRAMINE HYDROCHLORIDE;DIPROPHYLLINE;EPHEDRINE HYDROCHLORIDE;NO [Concomitant]
     Dosage: 15 MG, Q6H
     Route: 048

REACTIONS (4)
  - Neutrophil count decreased [Recovered/Resolved]
  - Off label use [Unknown]
  - White blood cell count increased [Recovered/Resolved]
  - Therapeutic response decreased [Unknown]

NARRATIVE: CASE EVENT DATE: 20230101
